FAERS Safety Report 19990741 (Version 3)
Quarter: 2021Q4

REPORT INFORMATION
  Report Type: Spontaneous
  Country: US (occurrence: US)
  Receive Date: 20211025
  Receipt Date: 20211111
  Transmission Date: 20220303
  Serious: No
  Sender: FDA-Public Use
  Company Number: US-SANOFI-00816841

PATIENT
  Age: 52 Year
  Sex: Male

DRUGS (1)
  1. DUPIXENT [Suspect]
     Active Substance: DUPILUMAB
     Indication: Asthma
     Dosage: 300 MG, QOW
     Dates: start: 202105

REACTIONS (2)
  - Eye pain [Recovering/Resolving]
  - Product use issue [Unknown]

NARRATIVE: CASE EVENT DATE: 20210929
